FAERS Safety Report 12562557 (Version 2)
Quarter: 2016Q4

REPORT INFORMATION
  Report Type: Spontaneous
  Country: DE (occurrence: DE)
  Receive Date: 20160715
  Receipt Date: 20161007
  Transmission Date: 20170207
  Serious: Yes (Death, Life-Threatening, Hospitalization)
  Sender: FDA-Public Use
  Company Number: DE-ASTRAZENECA-2016SE74472

PATIENT
  Age: 23478 Day
  Sex: Female

DRUGS (7)
  1. ACTRAPID [Concomitant]
     Active Substance: INSULIN HUMAN
     Dosage: AS REQUIRED
     Route: 058
  2. RAMIPRIL. [Concomitant]
     Active Substance: RAMIPRIL
     Route: 048
  3. LANTUS SOLOSTAR [Concomitant]
     Active Substance: INSULIN GLARGINE
     Route: 058
  4. TORASEMIDE [Concomitant]
     Active Substance: TORSEMIDE
  5. FORXIGA [Suspect]
     Active Substance: DAPAGLIFLOZIN
     Indication: TYPE 2 DIABETES MELLITUS
     Dosage: 10.0MG UNKNOWN
     Route: 048
  6. METAMIZOL [Concomitant]
     Active Substance: METAMIZOLE SODIUM
  7. FERRO SANOL [Concomitant]
     Active Substance: FERROUS GLYCINE SULFATE
     Dates: start: 201602

REACTIONS (5)
  - Blood glucose abnormal [Unknown]
  - Visual impairment [Unknown]
  - Obesity [Fatal]
  - Hypoacusis [Unknown]
  - Blood glucose fluctuation [Unknown]

NARRATIVE: CASE EVENT DATE: 20160208
